FAERS Safety Report 13775612 (Version 2)
Quarter: 2017Q3

REPORT INFORMATION
  Report Type: Spontaneous
  Country: FR (occurrence: FR)
  Receive Date: 20170721
  Receipt Date: 20170727
  Transmission Date: 20171127
  Serious: Yes (Hospitalization)
  Sender: FDA-Public Use
  Company Number: FR-JNJFOC-20170715790

PATIENT
  Age: 82 Year
  Sex: Male

DRUGS (1)
  1. XARELTO [Suspect]
     Active Substance: RIVAROXABAN
     Indication: PHLEBITIS
     Route: 048

REACTIONS (4)
  - Bladder spasm [Unknown]
  - Acute coronary syndrome [Recovering/Resolving]
  - Urinary retention [Unknown]
  - Pain [Unknown]

NARRATIVE: CASE EVENT DATE: 20170103
